FAERS Safety Report 15959594 (Version 1)
Quarter: 2019Q1

REPORT INFORMATION
  Report Type: Spontaneous
  Country: SE (occurrence: SE)
  Receive Date: 20190214
  Receipt Date: 20190214
  Transmission Date: 20190417
  Serious: Yes (Other)
  Sender: FDA-Public Use
  Company Number: SE-ACCORD-107115

PATIENT
  Age: 25 Year
  Sex: Female

DRUGS (5)
  1. QUETIAPINE. [Suspect]
     Active Substance: QUETIAPINE
     Indication: PRODUCT USED FOR UNKNOWN INDICATION
     Dosage: DOSERING:1-2 T.N.
     Route: 048
     Dates: start: 20170307, end: 20171010
  2. LITHIUM. [Concomitant]
     Active Substance: LITHIUM
  3. ZOLPIDEM/ZOLPIDEM TARTRATE [Concomitant]
  4. LAMOTRIGINE. [Concomitant]
     Active Substance: LAMOTRIGINE
  5. OXASCAND [Concomitant]
     Active Substance: OXAZEPAM

REACTIONS (2)
  - Alopecia [Not Recovered/Not Resolved]
  - Eczema [Recovered/Resolved]

NARRATIVE: CASE EVENT DATE: 20170315
